FAERS Safety Report 8880704 (Version 12)
Quarter: 2015Q2

REPORT INFORMATION
  Report Type: Spontaneous
  Country: JP (occurrence: JP)
  Receive Date: 20121101
  Receipt Date: 20150518
  Transmission Date: 20150821
  Serious: Yes (Hospitalization, Other)
  Sender: FDA-Public Use
  Company Number: JP-009507513-1210JPN013038

PATIENT
  Age: 36 Year
  Sex: Female

DRUGS (3)
  1. PREDNISOLONE. [Concomitant]
     Active Substance: PREDNISOLONE
     Indication: DERMATOMYOSITIS
  2. ALENDRONATE SODIUM. [Suspect]
     Active Substance: ALENDRONATE SODIUM
     Dosage: DAILY DOSAGE UNKNOWN
     Route: 048
     Dates: start: 200507, end: 200909
  3. PREDNISOLONE. [Concomitant]
     Active Substance: PREDNISOLONE
     Indication: SYSTEMIC LUPUS ERYTHEMATOSUS
     Dosage: 14 MG, FORMULATION: POR, DIVIDED DOSE FREQUENCY UNKNOWN
     Route: 048
     Dates: start: 200507

REACTIONS (7)
  - Intramedullary rod insertion [Recovered/Resolved]
  - Intramedullary rod insertion [Unknown]
  - Atypical femur fracture [Unknown]
  - Internal fixation of fracture [Unknown]
  - Femur fracture [Recovered/Resolved]
  - Intramedullary rod insertion [Recovered/Resolved]
  - Femur fracture [Recovered/Resolved]

NARRATIVE: CASE EVENT DATE: 200901
